FAERS Safety Report 21437420 (Version 1)
Quarter: 2022Q4

REPORT INFORMATION
  Report Type: Spontaneous
  Country: PL (occurrence: PL)
  Receive Date: 20221011
  Receipt Date: 20221011
  Transmission Date: 20230113
  Serious: Yes (Other)
  Sender: FDA-Public Use
  Company Number: None

PATIENT
  Age: 45 Year
  Sex: Female
  Weight: 76 kg

DRUGS (6)
  1. FLOXAL [Suspect]
     Active Substance: OFLOXACIN
     Indication: Facial pain
     Dosage: 6 DROPS IN TOTAL WERE TAKEN
     Route: 047
     Dates: start: 20201211, end: 20201213
  2. FLOXAL [Suspect]
     Active Substance: OFLOXACIN
     Indication: Eyelid oedema
  3. FLOXAL [Suspect]
     Active Substance: OFLOXACIN
     Indication: Eye pain
  4. DEXAMYTREX [DEXAMETHASONE;GENTAMICIN SULFATE] [Concomitant]
     Indication: Eyelid oedema
     Dosage: 4 DOSES IN TOTAL WERE TAKEN
     Route: 047
  5. DEXAMYTREX [DEXAMETHASONE;GENTAMICIN SULFATE] [Concomitant]
     Indication: Facial pain
  6. DEXAMYTREX [DEXAMETHASONE;GENTAMICIN SULFATE] [Concomitant]
     Indication: Eye pain

REACTIONS (18)
  - Dyschromatopsia [Recovered/Resolved]
  - Astigmatism [Not Recovered/Not Resolved]
  - Vision blurred [Recovered/Resolved]
  - Photophobia [Not Recovered/Not Resolved]
  - Eye pain [Not Recovered/Not Resolved]
  - Eye pain [Not Recovered/Not Resolved]
  - Diplopia [Not Recovered/Not Resolved]
  - Visual impairment [Not Recovered/Not Resolved]
  - Swelling face [Recovered/Resolved]
  - Facial pain [Recovered/Resolved]
  - Periorbital pain [Recovered/Resolved]
  - Burning sensation [Recovered/Resolved]
  - Swelling of eyelid [Recovered/Resolved]
  - Eyelid exfoliation [Recovered/Resolved]
  - Paraesthesia [Not Recovered/Not Resolved]
  - Erythema of eyelid [Recovered/Resolved]
  - Pruritus [Recovered/Resolved]
  - Eyelid skin dryness [Recovered/Resolved]

NARRATIVE: CASE EVENT DATE: 20201212
